FAERS Safety Report 4536249-7 (Version None)
Quarter: 2004Q4

REPORT INFORMATION
  Report Type: 
  Country: None (occurrence: None)
  Receive Date: 20041220
  Receipt Date: 20041209
  Transmission Date: 20050328
  Serious: Yes (Hospitalization)
  Sender: FDA-Public Use
  Company Number: MEDI-0002553

PATIENT
  Age: 57 Year
  Sex: Male
  Weight: 111 kg

DRUGS (8)
  1. ETHYOL [Suspect]
     Indication: RADIOTHERAPY
     Dosage: SUBCUTANEOUS
     Route: 058
     Dates: start: 20041103, end: 20041201
  2. RADIATION THERAPY [Concomitant]
  3. PROCHLORPERAZINE [Concomitant]
  4. MAGNESIUM SULFATE [Concomitant]
  5. OYSTER CALCIUM [Concomitant]
  6. TEQUIN [Concomitant]
  7. MAGNESIUM CHLORIDE [Concomitant]
  8. CISPLATIN [Concomitant]

REACTIONS (11)
  - ARTHRALGIA [None]
  - BLOOD TEST ABNORMAL [None]
  - CONSTIPATION [None]
  - DEEP VEIN THROMBOSIS [None]
  - DEHYDRATION [None]
  - INSOMNIA [None]
  - NAUSEA [None]
  - OESOPHAGITIS [None]
  - ORTHOSTATIC HYPOTENSION [None]
  - SWELLING [None]
  - VOMITING [None]
